FAERS Safety Report 7444877-4 (Version None)
Quarter: 2011Q2

REPORT INFORMATION
  Report Type: 
  Country: None (occurrence: None)
  Receive Date: 20110426
  Receipt Date: 20110426
  Transmission Date: 20111010
  Serious: Yes (Other)
  Sender: FDA-Public Use
  Company Number: None

PATIENT
  Age: 33 Year
  Sex: Female
  Weight: 101.6057 kg

DRUGS (1)
  1. NABUMETONE [Suspect]
     Indication: TEMPOROMANDIBULAR JOINT SYNDROME
     Dosage: 500 MG TWICE DAILY PO
     Route: 048
     Dates: start: 20100311, end: 20100325

REACTIONS (8)
  - FLATULENCE [None]
  - MUSCLE TWITCHING [None]
  - CONSTIPATION [None]
  - DIARRHOEA [None]
  - FATIGUE [None]
  - MUSCLE SPASMS [None]
  - GASTROINTESTINAL SOUNDS ABNORMAL [None]
  - ABDOMINAL PAIN [None]
